FAERS Safety Report 22197417 (Version 1)
Quarter: 2023Q2

REPORT INFORMATION
  Report Type: Spontaneous
  Country: US (occurrence: None)
  Receive Date: 20230411
  Receipt Date: 20230411
  Transmission Date: 20230722
  Serious: Yes (Hospitalization)
  Sender: FDA-Public Use
  Company Number: None

PATIENT
  Sex: Male

DRUGS (5)
  1. OCTREOTIDE [Suspect]
     Active Substance: OCTREOTIDE
     Indication: Irritable bowel syndrome
     Dosage: 200MG TWICE DAILY SUBCUTANEOUSLY?
     Route: 058
     Dates: start: 202302
  2. OCTREOTIDE [Suspect]
     Active Substance: OCTREOTIDE
     Indication: Gastroenteritis
  3. OCTREOTIDE [Suspect]
     Active Substance: OCTREOTIDE
     Indication: Pancreatic disorder
  4. OCTREOTIDE [Suspect]
     Active Substance: OCTREOTIDE
     Indication: Constipation
  5. OCTREOTIDE [Suspect]
     Active Substance: OCTREOTIDE
     Indication: Colitis

REACTIONS (2)
  - Drug hypersensitivity [None]
  - Blood potassium decreased [None]
